FAERS Safety Report 8641774 (Version 3)
Quarter: 2013Q2

REPORT INFORMATION
  Report Type: Spontaneous
  Country: US (occurrence: US)
  Receive Date: 20120628
  Receipt Date: 20130416
  Transmission Date: 20140414
  Serious: No
  Sender: FDA-Public Use
  Company Number: US-ASTRAZENECA-2012SE40569

PATIENT
  Age: 57 Year
  Sex: Female

DRUGS (7)
  1. NEXIUM [Suspect]
     Indication: PEPTIC ULCER
     Route: 048
  2. SEROQUEL [Suspect]
     Route: 048
  3. SEROQUEL [Suspect]
     Route: 048
  4. ALLEGRA [Concomitant]
  5. BENTYL [Concomitant]
  6. HIGH BLOOD PRESSURE MEDICATION [Concomitant]
     Indication: HYPERTENSION
  7. XANAX [Concomitant]

REACTIONS (23)
  - Appetite disorder [Unknown]
  - Anxiety [Unknown]
  - Heart rate irregular [Unknown]
  - Tachyphrenia [Unknown]
  - Feeling of despair [Unknown]
  - Inferiority complex [Unknown]
  - Psychiatric symptom [Unknown]
  - Nervousness [Unknown]
  - Obsessive thoughts [Unknown]
  - Stress [Unknown]
  - Disturbance in attention [Unknown]
  - Adverse event [Unknown]
  - Memory impairment [Unknown]
  - Inappropriate affect [Unknown]
  - Asthenia [Unknown]
  - Chest pain [Unknown]
  - Ulcer [Unknown]
  - Headache [Unknown]
  - Insomnia [Unknown]
  - Abdominal pain upper [Unknown]
  - Off label use [Unknown]
  - Drug dose omission [Unknown]
  - Circumstance or information capable of leading to medication error [Unknown]
